FAERS Safety Report 16686178 (Version 1)
Quarter: 2019Q3

REPORT INFORMATION
  Report Type: Spontaneous
  Country: CH (occurrence: CH)
  Receive Date: 20190809
  Receipt Date: 20190809
  Transmission Date: 20191004
  Serious: Yes (Death, Other)
  Sender: FDA-Public Use
  Company Number: CH-ALKEM LABORATORIES LIMITED-CH-ALKEM-2019-07171

PATIENT
  Age: 39 Year
  Sex: Female

DRUGS (1)
  1. METHADONE HYDROCHLORIDE. [Suspect]
     Active Substance: METHADONE HYDROCHLORIDE
     Indication: PRODUCT USED FOR UNKNOWN INDICATION
     Dosage: 180 MILLIGRAM
     Route: 048

REACTIONS (5)
  - Overdose [Fatal]
  - Substance use [Fatal]
  - Hypoxia [Fatal]
  - Toxicity to various agents [Fatal]
  - Brain oedema [Fatal]
